FAERS Safety Report 14317008 (Version 1)
Quarter: 2017Q4

REPORT INFORMATION
  Report Type: Spontaneous
  Country: DE (occurrence: DE)
  Receive Date: 20171222
  Receipt Date: 20171222
  Transmission Date: 20180321
  Serious: Yes (Other)
  Sender: FDA-Public Use
  Company Number: PHHY2017DE187384

PATIENT
  Sex: Female

DRUGS (3)
  1. LETROZOLE. [Suspect]
     Active Substance: LETROZOLE
     Indication: INVASIVE DUCTAL BREAST CARCINOMA
     Dosage: UNK
     Route: 065
     Dates: start: 2014, end: 2014
  2. AFINITOR [Suspect]
     Active Substance: EVEROLIMUS
     Indication: INVASIVE DUCTAL BREAST CARCINOMA
     Dosage: 05 MG, UNK
     Route: 065
     Dates: start: 2014, end: 2014
  3. CAPECITABINE. [Concomitant]
     Active Substance: CAPECITABINE
     Indication: INVASIVE DUCTAL BREAST CARCINOMA
     Dosage: 70 %, UNK
     Route: 065
     Dates: start: 2014, end: 2016

REACTIONS (8)
  - Fatigue [Unknown]
  - Metastases to thorax [Unknown]
  - Toxicity to various agents [Unknown]
  - Transaminases abnormal [Unknown]
  - Metastases to liver [Unknown]
  - Pneumonitis [Unknown]
  - Metastases to spine [Unknown]
  - Abdominal pain upper [Unknown]

NARRATIVE: CASE EVENT DATE: 2014
